FAERS Safety Report 11330656 (Version 3)
Quarter: 2015Q3

REPORT INFORMATION
  Report Type: Spontaneous
  Country: US (occurrence: US)
  Receive Date: 20150803
  Receipt Date: 20150814
  Transmission Date: 20151125
  Serious: Yes (Death, Other)
  Sender: FDA-Public Use
  Company Number: US-PFIZER INC-2015246246

PATIENT
  Age: 16 Year
  Sex: Female

DRUGS (5)
  1. DILANTIN [Suspect]
     Active Substance: PHENYTOIN
     Indication: SEIZURE
     Dosage: UNK
     Dates: end: 19450911
  2. TRIDIONE [Suspect]
     Active Substance: TRIMETHADIONE
     Dosage: UNK
     Dates: start: 19450911
  3. MESANTOIN [Suspect]
     Active Substance: MEPHENYTOIN
     Dosage: 0.1 G, 3X/DAY
     Dates: start: 194510
  4. TRIDIONE [Suspect]
     Active Substance: TRIMETHADIONE
     Dosage: 0.1 G, 3X/DAY
     Dates: start: 194510
  5. PHENOBARBITAL. [Concomitant]
     Active Substance: PHENOBARBITAL
     Indication: EPILEPSY

REACTIONS (2)
  - Pancytopenia [Not Recovered/Not Resolved]
  - Aplastic anaemia [Fatal]
